FAERS Safety Report 6147331-5 (Version None)
Quarter: 2009Q2

REPORT INFORMATION
  Report Type: 
  Country: None (occurrence: None)
  Receive Date: 20090408
  Receipt Date: 20090330
  Transmission Date: 20091009
  Serious: Yes (Other)
  Sender: FDA-Public Use
  Company Number: PHHY2009FR02287

PATIENT
  Age: 76 Year
  Sex: Male

DRUGS (7)
  1. STALEVO 100 [Suspect]
     Indication: PARKINSON'S DISEASE
     Dosage: 400 MG/DAILY
  2. STALEVO 100 [Suspect]
     Dosage: 3X150 MG/DAILY
     Dates: start: 20090120
  3. COZAAR [Concomitant]
     Dosage: 50 MG, BID
  4. SOTALEX [Concomitant]
     Dosage: 3X 40 MG
  5. PLAVIX [Concomitant]
     Dosage: 75 MG DAILY
  6. VASTAREL ^BIOPHARMA^ [Concomitant]
     Dosage: 35 MG DAILY
  7. TEMESTA [Concomitant]
     Dosage: IN THE EVENING

REACTIONS (10)
  - BLOOD PRESSURE SYSTOLIC [None]
  - DEPRESSION [None]
  - HOT FLUSH [None]
  - HYPERTENSION [None]
  - MALAISE [None]
  - RENAL ARTERY OCCLUSION [None]
  - SKIN DISCOLOURATION [None]
  - SUICIDAL IDEATION [None]
  - TREMOR [None]
  - WEIGHT DECREASED [None]
